FAERS Safety Report 4956874-9 (Version None)
Quarter: 2006Q1

REPORT INFORMATION
  Report Type: 
  Country: None (occurrence: None)
  Receive Date: 20060323
  Receipt Date: 20060310
  Transmission Date: 20060701
  Serious: Yes (Other)
  Sender: FDA-Public Use
  Company Number: 2006-BP-02764RO

PATIENT
  Age: 42 Year
  Sex: Female

DRUGS (1)
  1. PREDNISONE TAB [Suspect]
     Indication: HYPOPITUITARISM
     Dosage: PO
     Route: 048

REACTIONS (5)
  - ANGIOTENSIN CONVERTING ENZYME INCREASED [None]
  - CONDITION AGGRAVATED [None]
  - CUTANEOUS SARCOIDOSIS [None]
  - SCAR [None]
  - SKIN NODULE [None]
